FAERS Safety Report 9907383 (Version 2)
Quarter: 2014Q2

REPORT INFORMATION
  Report Type: Spontaneous
  Country: US (occurrence: US)
  Receive Date: 20140218
  Receipt Date: 20140516
  Transmission Date: 20141212
  Serious: Yes (Hospitalization, Other)
  Sender: FDA-Public Use
  Company Number: US-GILEAD-2014-0094692

PATIENT
  Age: 68 Year
  Sex: Male

DRUGS (11)
  1. LETAIRIS [Suspect]
     Indication: PULMONARY ARTERIAL HYPERTENSION
     Dosage: 10 MG, QD
     Route: 065
     Dates: start: 20131128
  2. THEOPHYLLINE [Concomitant]
  3. ASPIRIN [Concomitant]
  4. GLIPIZIDE [Concomitant]
  5. METOPROLOL [Concomitant]
  6. VENTAVIS [Concomitant]
  7. JANUVIA [Concomitant]
  8. LANTUS [Concomitant]
  9. LASIX                              /00032601/ [Concomitant]
  10. ACARBOSE [Concomitant]
  11. EFFIENT [Concomitant]

REACTIONS (1)
  - Pulmonary arterial hypertension [Not Recovered/Not Resolved]
